FAERS Safety Report 21331145 (Version 1)
Quarter: 2022Q3

REPORT INFORMATION
  Report Type: Spontaneous
  Country: US (occurrence: None)
  Receive Date: 20220914
  Receipt Date: 20220914
  Transmission Date: 20221027
  Serious: No
  Sender: FDA-Public Use
  Company Number: US-ROCHE-3115376

PATIENT
  Age: 69 Year
  Sex: Female

DRUGS (1)
  1. ENSPRYNG [Suspect]
     Active Substance: SATRALIZUMAB-MWGE
     Indication: Neuromyelitis optica spectrum disorder
     Dosage: STRENGTH: 120 MG/ML
     Route: 058
     Dates: start: 202103

REACTIONS (6)
  - Device malfunction [Unknown]
  - Accidental exposure to product [Unknown]
  - No adverse event [Unknown]
  - Device issue [Unknown]
  - Needle issue [Unknown]
  - Device issue [Unknown]

NARRATIVE: CASE EVENT DATE: 20220606
